FAERS Safety Report 6172160-6 (Version None)
Quarter: 2009Q2

REPORT INFORMATION
  Report Type: 
  Country: None (occurrence: None)
  Receive Date: 20090429
  Receipt Date: 20080725
  Transmission Date: 20091009
  Serious: No
  Sender: FDA-Public Use
  Company Number: A0739582A

PATIENT

DRUGS (1)
  1. ZOFRAN [Suspect]

REACTIONS (1)
  - HYPOTENSION [None]
